FAERS Safety Report 11587446 (Version 2)
Quarter: 2015Q4

REPORT INFORMATION
  Report Type: Spontaneous
  Country: DE (occurrence: DE)
  Receive Date: 20151001
  Receipt Date: 20151005
  Transmission Date: 20160304
  Serious: Yes (Other)
  Sender: FDA-Public Use
  Company Number: PHHY2015DE118017

PATIENT
  Age: 24 Year
  Sex: Female

DRUGS (1)
  1. GILENYA [Suspect]
     Active Substance: FINGOLIMOD HYDROCHLORIDE
     Indication: RELAPSING-REMITTING MULTIPLE SCLEROSIS
     Dosage: 0.5 MG, QD
     Route: 048

REACTIONS (6)
  - Vision blurred [Recovered/Resolved]
  - Retinal exudates [Unknown]
  - Retinal disorder [Recovered/Resolved]
  - Maculopathy [Unknown]
  - Retinal haemorrhage [Recovered/Resolved]
  - Cystoid macular oedema [Recovered/Resolved]
